FAERS Safety Report 7640856-2 (Version None)
Quarter: 2011Q3

REPORT INFORMATION
  Report Type: 
  Country: None (occurrence: None)
  Receive Date: 20110728
  Receipt Date: 20110715
  Transmission Date: 20111222
  Serious: Yes (Hospitalization)
  Sender: FDA-Public Use
  Company Number: KR-JNJFOC-20110707162

PATIENT
  Sex: Female
  Weight: 67 kg

DRUGS (6)
  1. BLINDED; PALIPERIDONE PALMITATE [Suspect]
     Indication: SCHIZOPHRENIA
     Route: 030
     Dates: start: 20110623, end: 20110630
  2. PLACEBO [Suspect]
     Indication: SCHIZOPHRENIA
     Route: 030
     Dates: start: 20110623, end: 20110630
  3. LORIVAN [Concomitant]
     Indication: INSOMNIA
     Dates: start: 20110625, end: 20110712
  4. TYLENOL-500 [Suspect]
  5. TYLENOL-500 [Suspect]
     Indication: SUICIDE ATTEMPT
  6. LORIVAN [Concomitant]
     Dates: start: 20110623, end: 20110623

REACTIONS (1)
  - SUICIDE ATTEMPT [None]
